FAERS Safety Report 15746896 (Version 1)
Quarter: 2018Q4

REPORT INFORMATION
  Report Type: Spontaneous
  Country: FI (occurrence: FI)
  Receive Date: 20181220
  Receipt Date: 20181220
  Transmission Date: 20190205
  Serious: Yes (Other)
  Sender: FDA-Public Use
  Company Number: FI-PFM-2018-14678

PATIENT

DRUGS (3)
  1. PROPRANOLOL HYDROCHLORIDE. [Suspect]
     Active Substance: PROPRANOLOL HYDROCHLORIDE
     Indication: PRODUCT USE IN UNAPPROVED INDICATION
     Route: 065
  2. MELATONIN [Suspect]
     Active Substance: MELATONIN
     Indication: INSOMNIA
     Route: 065
  3. IMOVANE [Suspect]
     Active Substance: ZOPICLONE
     Indication: INSOMNIA
     Dosage: UNK
     Route: 065

REACTIONS (3)
  - Product use issue [Unknown]
  - Inguinal hernia [Unknown]
  - Off label use [Unknown]

NARRATIVE: CASE EVENT DATE: 201811
